FAERS Safety Report 16530127 (Version 2)
Quarter: 2019Q3

REPORT INFORMATION
  Report Type: Spontaneous
  Country: US (occurrence: US)
  Receive Date: 20190704
  Receipt Date: 20190731
  Transmission Date: 20191004
  Serious: Yes (Hospitalization)
  Sender: FDA-Public Use
  Company Number: US-TEVA-2019-US-1070474

PATIENT
  Age: 59 Year
  Sex: Male
  Weight: 78.6 kg

DRUGS (8)
  1. VANCOMYCIN [Suspect]
     Active Substance: VANCOMYCIN
     Indication: STAPHYLOCOCCAL INFECTION
     Dosage: ROUTE: {SUPRAPATELLAR AREA OF THE KNEE}; CALCIUM SULFATE BEADS CONTAINING VANCOMYCIN AND TOBRAMYCIN
     Route: 050
  2. ADALIMUMAB [Concomitant]
     Active Substance: ADALIMUMAB
     Indication: ANKYLOSING SPONDYLITIS
     Route: 065
  3. TOBRAMYCIN. [Suspect]
     Active Substance: TOBRAMYCIN
     Indication: STAPHYLOCOCCAL INFECTION
     Dosage: FORMULATION: BEADS
     Route: 050
  4. VANCOMYCIN [Suspect]
     Active Substance: VANCOMYCIN
     Route: 050
  5. STIMULAN (CALCIUM SULFATE) [Suspect]
     Active Substance: CALCIUM SULFATE
     Indication: STAPHYLOCOCCAL INFECTION
     Dosage: FORMULATION: BEADS
     Route: 050
  6. VANCOMYCIN [Suspect]
     Active Substance: VANCOMYCIN
     Dosage: FORMULATION: BEADS
     Route: 050
  7. CEFTRIAXONE. [Concomitant]
     Active Substance: CEFTRIAXONE
     Indication: STAPHYLOCOCCAL INFECTION
     Route: 051
  8. CEFEPIME [Concomitant]
     Active Substance: CEFEPIME HYDROCHLORIDE
     Indication: STAPHYLOCOCCAL INFECTION
     Route: 051

REACTIONS (3)
  - Renal tubular necrosis [Recovering/Resolving]
  - Blood calcium increased [Recovered/Resolved]
  - Toxicity to various agents [Recovering/Resolving]
